FAERS Safety Report 5395285-1 (Version None)
Quarter: 2007Q3

REPORT INFORMATION
  Report Type: 
  Country: None (occurrence: None)
  Receive Date: 20070724
  Receipt Date: 20070716
  Transmission Date: 20080115
  Serious: Yes (Disabling, Other)
  Sender: FDA-Public Use
  Company Number: US-GENENTECH-236610

PATIENT
  Sex: Female
  Weight: 79.365 kg

DRUGS (1)
  1. AVASTIN [Suspect]
     Indication: MACULAR DEGENERATION
     Dosage: UNK, SINGLE
     Route: 031
     Dates: start: 20060203, end: 20060203

REACTIONS (1)
  - INTRAOCULAR PRESSURE INCREASED [None]
